FAERS Safety Report 8886298 (Version 1)
Quarter: 2012Q4

REPORT INFORMATION
  Report Type: 
  Country: MY (occurrence: MY)
  Receive Date: 20121105
  Receipt Date: 20121105
  Transmission Date: 20130627
  Serious: Yes (Death, Hospitalization, Other)
  Sender: FDA-Public Use
  Company Number: PHHY2012MY098966

PATIENT
  Age: 0 Year
  Sex: Male
  Weight: .78 kg

DRUGS (4)
  1. TASIGNA [Suspect]
     Indication: CHRONIC MYELOID LEUKAEMIA
     Dosage: 400 mg, BID
     Route: 064
     Dates: start: 20110310
  2. TASIGNA [Suspect]
     Dosage: 200 mg, QD
     Route: 064
     Dates: start: 20110603
  3. TASIGNA [Suspect]
     Dosage: 200 mg, BID
     Route: 064
     Dates: start: 20120305, end: 20120626
  4. INTERFERON [Concomitant]
     Dosage: 3 mu for three times a week
     Route: 058

REACTIONS (4)
  - Neonatal respiratory distress syndrome [Fatal]
  - Splenomegaly [Unknown]
  - Hepatomegaly [Unknown]
  - Foetal exposure during pregnancy [Unknown]
